FAERS Safety Report 21866942 (Version 2)
Quarter: 2023Q1

REPORT INFORMATION
  Report Type: Spontaneous
  Country: US (occurrence: US)
  Receive Date: 20230116
  Receipt Date: 20230124
  Transmission Date: 20230418
  Serious: Yes (Other)
  Sender: FDA-Public Use
  Company Number: US-002147023-NVSC2023US008166

PATIENT
  Sex: Male
  Weight: 85 kg

DRUGS (1)
  1. TISAGENLECLEUCEL [Suspect]
     Active Substance: TISAGENLECLEUCEL
     Indication: Acute lymphocytic leukaemia
     Dosage: 14 ML, ONCE/SINGLE
     Route: 042
     Dates: start: 20220131

REACTIONS (1)
  - Acute lymphocytic leukaemia recurrent [Unknown]
